FAERS Safety Report 9229935 (Version 1)
Quarter: 2013Q2

REPORT INFORMATION
  Report Type: Spontaneous
  Country: US (occurrence: None)
  Receive Date: 20130411
  Receipt Date: 20130411
  Transmission Date: 20140414
  Serious: Yes (Hospitalization, Other)
  Sender: FDA-Public Use
  Company Number: AUR-APL-2013-02877

PATIENT
  Age: 54 Year
  Sex: Female

DRUGS (4)
  1. MELOXICAM (MELOXICAM) [Suspect]
  2. ENBREL [Suspect]
     Dates: start: 20120829, end: 201212
  3. AZATHIOPRINE [Suspect]
  4. METHOTREXATE (METHOTREXATE) [Concomitant]

REACTIONS (4)
  - Urinary tract infection [None]
  - Staphylococcal infection [None]
  - Cellulitis [None]
  - Hepatic enzyme increased [None]
